FAERS Safety Report 8004604-9 (Version None)
Quarter: 2011Q4

REPORT INFORMATION
  Report Type: 
  Country: None (occurrence: None)
  Receive Date: 20111223
  Receipt Date: 20111214
  Transmission Date: 20120403
  Serious: Yes (Other)
  Sender: FDA-Public Use
  Company Number: US-PERRIGO-11US010989

PATIENT
  Sex: Female
  Weight: 71.655 kg

DRUGS (3)
  1. NICOTINE POLACRILEX [Suspect]
     Indication: SMOKING CESSATION THERAPY
     Dosage: ONE LOZENGE, EVERY 1 TO 2 HOURS
     Route: 002
     Dates: start: 20110801, end: 20110911
  2. NICOTINE POLACRILEX [Suspect]
     Dosage: ONE LOZENGE, EVERY 2 TO 4 HOURS
     Route: 002
     Dates: start: 20110912, end: 20111002
  3. NICOTINE POLACRILEX [Suspect]
     Dosage: ONE LOZENGE, EVERY 4 TO 8 HOURS
     Route: 002
     Dates: start: 20111003, end: 20111024

REACTIONS (3)
  - TOOTH EXTRACTION [None]
  - GINGIVITIS [None]
  - GINGIVAL BLEEDING [None]
